FAERS Safety Report 7349603-5 (Version None)
Quarter: 2011Q1

REPORT INFORMATION
  Report Type: 
  Country: None (occurrence: None)
  Receive Date: 20110314
  Receipt Date: 20110304
  Transmission Date: 20110831
  Serious: Yes (Hospitalization)
  Sender: FDA-Public Use
  Company Number: JP-ASTRAZENECA-2011SE03675

PATIENT
  Age: 73 Year
  Sex: Male
  Weight: 60 kg

DRUGS (8)
  1. KETAS [Concomitant]
     Indication: CEREBRAL INFARCTION
     Route: 048
     Dates: start: 20040101
  2. ISALON [Concomitant]
     Indication: GASTRIC ULCER
     Route: 048
     Dates: start: 20040101
  3. BICALUTAMIDE [Concomitant]
     Indication: PROSTATE CANCER
     Route: 048
     Dates: start: 20110111, end: 20110119
  4. BLOPRESS [Concomitant]
     Indication: HYPERTENSION
     Dosage: DAILY
     Route: 048
     Dates: start: 20040101
  5. GLIMICRON [Concomitant]
     Indication: DIABETES MELLITUS
     Route: 048
     Dates: start: 20040101
  6. ZOLADEX [Suspect]
     Indication: PROSTATE CANCER
     Route: 058
     Dates: start: 20110118
  7. PANALDINE [Concomitant]
     Indication: CEREBRAL INFARCTION
     Route: 048
     Dates: start: 20040101
  8. ALTAT [Concomitant]
     Indication: GASTRIC ULCER
     Route: 048
     Dates: start: 20040101

REACTIONS (8)
  - C-REACTIVE PROTEIN INCREASED [None]
  - PYREXIA [None]
  - PRURITUS [None]
  - LIVER FUNCTION TEST ABNORMAL [None]
  - WHITE BLOOD CELL COUNT INCREASED [None]
  - TOXIC SKIN ERUPTION [None]
  - EOSINOPHIL COUNT INCREASED [None]
  - PELVIC PAIN [None]
